FAERS Safety Report 8366240-4 (Version None)
Quarter: 2012Q2

REPORT INFORMATION
  Report Type: 
  Country: None (occurrence: None)
  Receive Date: 20120517
  Receipt Date: 20120511
  Transmission Date: 20120825
  Serious: Yes (Other)
  Sender: FDA-Public Use
  Company Number: PHHY2011CA77748

PATIENT
  Sex: Female
  Weight: 58.957 kg

DRUGS (3)
  1. GILENYA [Suspect]
     Indication: RELAPSING-REMITTING MULTIPLE SCLEROSIS
     Dosage: 0.5 MG, DAILY
     Route: 048
     Dates: start: 20100810, end: 20110821
  2. HYDROCHLOROTHIAZIDE [Concomitant]
     Indication: HYPERTENSION
     Dosage: 12.5 MG, QD
     Route: 048
  3. NORVASC [Concomitant]
     Dosage: 7.5 MG, UNK
     Route: 048

REACTIONS (7)
  - HAEMORRHAGE IN PREGNANCY [None]
  - POSTPARTUM HAEMORRHAGE [None]
  - PREGNANCY [None]
  - NAUSEA [None]
  - MATERNAL EXPOSURE DURING PREGNANCY [None]
  - HEADACHE [None]
  - NORMAL NEWBORN [None]
